FAERS Safety Report 18272973 (Version 2)
Quarter: 2020Q4

REPORT INFORMATION
  Report Type: Spontaneous
  Country: US (occurrence: US)
  Receive Date: 20200916
  Receipt Date: 20201005
  Transmission Date: 20210113
  Serious: Yes (Life-Threatening, Hospitalization, Disabling, Other)
  Sender: FDA-Public Use
  Company Number: US-009507513-2009USA004315

PATIENT
  Sex: Male

DRUGS (5)
  1. TEMODAR [Suspect]
     Active Substance: TEMOZOLOMIDE
     Indication: BRAIN NEOPLASM
     Dosage: 150-200-300MG ON 7 DAYS AND OFF 7 DAYS
     Route: 048
     Dates: start: 20200601, end: 20200720
  2. TYSABRI [Concomitant]
     Active Substance: NATALIZUMAB
     Dosage: UNK
  3. DIETARY SUPPLEMENT (UNSPECIFIED) [Concomitant]
     Active Substance: DIETARY SUPPLEMENT
  4. COPAXONE [Concomitant]
     Active Substance: GLATIRAMER ACETATE
  5. AVASTIN (SIMVASTATIN) [Concomitant]
     Active Substance: SIMVASTATIN

REACTIONS (6)
  - Tendonitis [Not Recovered/Not Resolved]
  - Inappropriate schedule of product administration [Unknown]
  - Adverse event [Not Recovered/Not Resolved]
  - Renal impairment [Not Recovered/Not Resolved]
  - Pancreatitis acute [Not Recovered/Not Resolved]
  - Arthralgia [Not Recovered/Not Resolved]

NARRATIVE: CASE EVENT DATE: 2020
